FAERS Safety Report 5727397-4 (Version None)
Quarter: 2008Q2

REPORT INFORMATION
  Report Type: 
  Country: None (occurrence: None)
  Receive Date: 20080430
  Receipt Date: 20080421
  Transmission Date: 20081010
  Serious: Yes (Hospitalization, Other)
  Sender: FDA-Public Use
  Company Number: TPA2008A00539

PATIENT
  Age: 79 Year
  Sex: Male
  Weight: 76.2043 kg

DRUGS (6)
  1. ROZEREM [Suspect]
     Indication: INSOMNIA
     Dosage: 8 MG, QHS, PER ORAL; 8 MG, QHS, PER ORAL
     Route: 048
     Dates: start: 20080401, end: 20080401
  2. ROZEREM [Suspect]
     Indication: INSOMNIA
     Dosage: 8 MG, QHS, PER ORAL; 8 MG, QHS, PER ORAL
     Route: 048
     Dates: start: 20080420
  3. PREVACID [Concomitant]
  4. ASPIRIN [Concomitant]
  5. WELCHOL [Suspect]
  6. MULTIVITAMIN [Concomitant]

REACTIONS (4)
  - HAEMOGLOBIN DECREASED [None]
  - HAEMORRHAGE [None]
  - INSOMNIA [None]
  - OXYGEN SATURATION DECREASED [None]
